FAERS Safety Report 4922002-9 (Version None)
Quarter: 2006Q1

REPORT INFORMATION
  Report Type: 
  Country: None (occurrence: None)
  Receive Date: 20060222
  Receipt Date: 20060222
  Transmission Date: 20060701
  Serious: Yes (Life-Threatening, Hospitalization)
  Sender: FDA-Public Use
  Company Number: None

PATIENT
  Age: 53 Year
  Sex: Male
  Weight: 96.1626 kg

DRUGS (5)
  1. BENAZEPRIL HCL [Suspect]
     Indication: HYPERTENSION
     Dosage: 60 MG CHRONIC, INCREASE DOSE RECENTLY
  2. GLUCOPHAGE [Concomitant]
  3. LOTREL [Concomitant]
  4. LOTENSIN [Concomitant]
  5. NEURONTIN [Concomitant]

REACTIONS (2)
  - RESPIRATORY DISORDER [None]
  - SWOLLEN TONGUE [None]
